FAERS Safety Report 15879991 (Version 3)
Quarter: 2019Q1

REPORT INFORMATION
  Report Type: Spontaneous
  Country: ES (occurrence: ES)
  Receive Date: 20190128
  Receipt Date: 20190315
  Transmission Date: 20190417
  Serious: Yes (Other)
  Sender: FDA-Public Use
  Company Number: PHHY2019ES015314

PATIENT
  Age: 3 Year
  Sex: Male

DRUGS (1)
  1. AMOXICILLIN. [Suspect]
     Active Substance: AMOXICILLIN
     Indication: RESPIRATORY TRACT INFECTION
     Dosage: 450 MG, UNK
     Route: 048
     Dates: start: 201602

REACTIONS (3)
  - Urticaria [Recovered/Resolved]
  - Rash maculo-papular [Recovered/Resolved]
  - Type IV hypersensitivity reaction [Recovered/Resolved]
